FAERS Safety Report 9006027 (Version 1)
Quarter: 2013Q1

REPORT INFORMATION
  Report Type: Spontaneous
  Country: BR (occurrence: BR)
  Receive Date: 20130109
  Receipt Date: 20130109
  Transmission Date: 20140127
  Serious: Yes (Death, Hospitalization, Other)
  Sender: FDA-Public Use
  Company Number: PHHY2013BR001843

PATIENT
  Age: 81 Year
  Sex: Male
  Weight: 82 kg

DRUGS (4)
  1. DIOVAN HCT [Suspect]
     Indication: HYPERTENSION
     Dosage: 1 DF (ONE MORNING AND ONE EVENING), (320 MG VAL/ 12.5 MG HCT)BID
     Dates: start: 2009
  2. CITALOR [Concomitant]
     Indication: BLOOD CHOLESTEROL INCREASED
     Dosage: 1 DF (ONE MORNING AND ONE AT NIGHT), BID
     Dates: start: 2009, end: 20121014
  3. INSULIN NPH//INSULIN ISOPHANE BOVINE [Concomitant]
     Indication: DIABETES MELLITUS
     Dosage: 15 IU, DAILY
  4. ASPIRINA PREVENT [Concomitant]
     Indication: ANTICOAGULANT THERAPY
     Dosage: 2 DF(AFTER LUNCH),
     Dates: start: 2005

REACTIONS (16)
  - Renal failure [Fatal]
  - Abdominal pain lower [Fatal]
  - Urine flow decreased [Fatal]
  - Blood creatinine increased [Fatal]
  - Blood urea increased [Fatal]
  - Urosepsis [Fatal]
  - Renal pain [Fatal]
  - Pyrexia [Fatal]
  - Diabetes mellitus [Fatal]
  - Hyperglycaemia [Fatal]
  - Hypertension [Fatal]
  - Cardiac failure congestive [Fatal]
  - Atrial fibrillation [Fatal]
  - Cardiac failure [Unknown]
  - Mitral valve disease [Unknown]
  - Heart rate decreased [Recovered/Resolved]
